FAERS Safety Report 8382588-1 (Version None)
Quarter: 2012Q2

REPORT INFORMATION
  Report Type: 
  Country: None (occurrence: None)
  Receive Date: 20120522
  Receipt Date: 20110427
  Transmission Date: 20120825
  Serious: Yes (Other)
  Sender: FDA-Public Use
  Company Number: 2011-02074

PATIENT
  Age: 76 Year
  Sex: Male

DRUGS (3)
  1. ATROVENT [Concomitant]
  2. FLUTICASONE PROPIONATE/SALMETEROL [Concomitant]
  3. IMMUCYST [Suspect]
     Indication: BLADDER CANCER STAGE 0, WITH CANCER IN SITU
     Dosage: 81.0 MG I.VES., BLADDER
     Dates: start: 20100930, end: 20100930

REACTIONS (2)
  - PAROTID GLAND ENLARGEMENT [None]
  - PYREXIA [None]
